FAERS Safety Report 9276723 (Version 2)
Quarter: 2013Q4

REPORT INFORMATION
  Report Type: Report from Study
  Country: US (occurrence: US)
  Receive Date: 20130507
  Receipt Date: 20131112
  Transmission Date: 20140711
  Serious: Yes (Hospitalization)
  Sender: FDA-Public Use
  Company Number: US-ELI_LILLY_AND_COMPANY-US201202002309

PATIENT
  Age: 86 Year
  Sex: Female

DRUGS (11)
  1. TERIPARATIDE [Suspect]
     Indication: OSTEOPOROSIS
     Dosage: 20 UNK, UNK
     Route: 065
     Dates: start: 20120107
  2. TERIPARATIDE [Suspect]
     Dosage: 20 UG, QD
     Route: 065
     Dates: start: 20120107
  3. TERIPARATIDE [Suspect]
     Dosage: 20 UG, QD
     Route: 065
     Dates: start: 201301, end: 201305
  4. COUMADIN                           /00014802/ [Concomitant]
     Indication: PRODUCT USED FOR UNKNOWN INDICATION
     Route: 065
  5. FLORASTOR [Concomitant]
     Indication: PRODUCT USED FOR UNKNOWN INDICATION
     Route: 065
  6. POTASSIUM [Concomitant]
     Indication: PRODUCT USED FOR UNKNOWN INDICATION
     Dosage: UNK
     Route: 065
  7. PANTOPRAZOLE [Concomitant]
     Indication: PRODUCT USED FOR UNKNOWN INDICATION
     Route: 065
  8. BUMETANIDE [Concomitant]
     Indication: PRODUCT USED FOR UNKNOWN INDICATION
     Route: 065
  9. MIDODRINE [Concomitant]
     Indication: PRODUCT USED FOR UNKNOWN INDICATION
     Route: 065
  10. SYNTHYROID [Concomitant]
     Indication: PRODUCT USED FOR UNKNOWN INDICATION
     Route: 065
  11. VANCOMYCIN [Concomitant]
     Indication: PRODUCT USED FOR UNKNOWN INDICATION
     Route: 065

REACTIONS (14)
  - Atrial fibrillation [Unknown]
  - Cardiac failure congestive [Unknown]
  - Renal failure [Unknown]
  - Clostridium difficile infection [Unknown]
  - Pleural effusion [Unknown]
  - Dysphonia [Recovered/Resolved]
  - Cough [Unknown]
  - Nasopharyngitis [Unknown]
  - Injection site bruising [Unknown]
  - Diabetes mellitus [Unknown]
  - Blood calcium increased [Unknown]
  - Weight decreased [Unknown]
  - Balance disorder [Unknown]
  - Blood potassium abnormal [Unknown]
